FAERS Safety Report 5958801-4 (Version None)
Quarter: 2008Q4

REPORT INFORMATION
  Report Type: 
  Country: None (occurrence: None)
  Receive Date: 20081117
  Receipt Date: 20081030
  Transmission Date: 20090506
  Serious: Yes (Other)
  Sender: FDA-Public Use
  Company Number: 8037944

PATIENT
  Age: 44 Year
  Sex: Female
  Weight: 77.73 kg

DRUGS (3)
  1. CIMZIA [Suspect]
     Indication: CROHN'S DISEASE
     Dosage: 1/2W SC
     Route: 058
     Dates: start: 20080910
  2. ZYRTEC [Concomitant]
  3. BENADRYL [Concomitant]

REACTIONS (4)
  - BUTTERFLY RASH [None]
  - HEADACHE [None]
  - HERPES ZOSTER [None]
  - NAUSEA [None]
